FAERS Safety Report 7728883-8 (Version None)
Quarter: 2011Q3

REPORT INFORMATION
  Report Type: 
  Country: None (occurrence: None)
  Receive Date: 20110906
  Receipt Date: 20110826
  Transmission Date: 20111222
  Serious: Yes (Other)
  Sender: FDA-Public Use
  Company Number: PHHY2011MA77715

PATIENT
  Sex: Female

DRUGS (1)
  1. PREDNISONE [Suspect]
     Indication: DERMATOSIS
     Dosage: 0.5 MG TO 2 MG/KG, UNK

REACTIONS (2)
  - SUICIDE ATTEMPT [None]
  - DEPRESSION [None]
